FAERS Safety Report 17452391 (Version 1)
Quarter: 2020Q1

REPORT INFORMATION
  Report Type: Spontaneous
  Country: US (occurrence: US)
  Receive Date: 20200224
  Receipt Date: 20200224
  Transmission Date: 20200409
  Serious: Yes (Hospitalization, Other)
  Sender: FDA-Public Use
  Company Number: US-JNJFOC-20200217183

PATIENT
  Sex: Male

DRUGS (1)
  1. ERDAFITINIB. [Suspect]
     Active Substance: ERDAFITINIB
     Indication: METASTATIC CARCINOMA OF THE BLADDER
     Route: 048
     Dates: start: 202001, end: 20200211

REACTIONS (2)
  - Hypoxia [Unknown]
  - Acute respiratory failure [Not Recovered/Not Resolved]

NARRATIVE: CASE EVENT DATE: 20200203
